FAERS Safety Report 8607469-7 (Version None)
Quarter: 2012Q3

REPORT INFORMATION
  Report Type: 
  Country: None (occurrence: None)
  Receive Date: 20120821
  Receipt Date: 20120814
  Transmission Date: 20120928
  Serious: Yes (Hospitalization)
  Sender: FDA-Public Use
  Company Number: ZA-SANOFI-AVENTIS-2012SA058486

PATIENT
  Age: 68 Year
  Sex: Male

DRUGS (7)
  1. ANTIHYPERTENSIVES [Concomitant]
     Indication: HYPERTENSION
     Route: 048
     Dates: end: 20120701
  2. LANTUS [Suspect]
     Route: 058
     Dates: end: 20120601
  3. GLUCOPHAGE [Concomitant]
     Route: 048
  4. APIDRA SOLOSTAR [Suspect]
     Route: 058
  5. SOLOSTAR [Suspect]
     Indication: DEVICE THERAPY
  6. SOLOSTAR [Suspect]
  7. CHOLESTEROL [Concomitant]
     Route: 048

REACTIONS (1)
  - SEPSIS [None]
